FAERS Safety Report 8604341-3 (Version None)
Quarter: 2012Q3

REPORT INFORMATION
  Report Type: 
  Country: None (occurrence: None)
  Receive Date: 20120808
  Receipt Date: 20120808
  Transmission Date: 20120928
  Serious: Yes (Hospitalization)
  Sender: FDA-Public Use
  Company Number: None

PATIENT
  Sex: Female
  Weight: 52 kg

DRUGS (3)
  1. AQUACLIN GEL DE TRATAMENTO ANTIACNE (BENZOYL PEROXIDE) 5 % [Suspect]
     Indication: ACNE
     Dosage: ONLY ONE APPLICATION TOPICAL
     Route: 061
     Dates: start: 20120606, end: 20120606
  2. FRENURIN [Concomitant]
  3. HYDROCHLOROTHIAZIDE [Concomitant]

REACTIONS (8)
  - PAIN [None]
  - DERMATITIS DIAPER [None]
  - ERYTHEMA [None]
  - CELLULITIS [None]
  - SWELLING FACE [None]
  - PRURITUS [None]
  - RASH PUSTULAR [None]
  - SKIN HYPERTROPHY [None]
